FAERS Safety Report 22738902 (Version 2)
Quarter: 2024Q3

REPORT INFORMATION
  Report Type: Spontaneous
  Country: US (occurrence: US)
  Receive Date: 20230721
  Receipt Date: 20240721
  Transmission Date: 20241017
  Serious: No
  Sender: NOVO NORDISK
  Company Number: US-NOVOPROD-1035464

PATIENT
  Sex: Female

DRUGS (1)
  1. WEGOVY [Suspect]
     Active Substance: SEMAGLUTIDE
     Indication: Obesity
     Dosage: UNK
     Route: 058
     Dates: start: 20230131

REACTIONS (4)
  - Hypertension [Recovering/Resolving]
  - Headache [Recovering/Resolving]
  - Weight loss poor [Unknown]
  - Off label use [Unknown]

NARRATIVE: CASE EVENT DATE: 20230131
